FAERS Safety Report 5526882-8 (Version None)
Quarter: 2007Q4

REPORT INFORMATION
  Report Type: 
  Country: None (occurrence: None)
  Receive Date: 20071127
  Receipt Date: 20071126
  Transmission Date: 20080405
  Serious: Yes (Hospitalization)
  Sender: FDA-Public Use
  Company Number: PHNU2007DE03061

PATIENT
  Age: 62 Year
  Sex: Male
  Weight: 86 kg

DRUGS (1)
  1. EXFORGE [Suspect]
     Indication: HYPERTENSION
     Dosage: 1 DF/D
     Route: 048
     Dates: start: 20070619

REACTIONS (5)
  - ATRIAL FIBRILLATION [None]
  - CARDIOVERSION [None]
  - CONDITION AGGRAVATED [None]
  - HEART RATE IRREGULAR [None]
  - PALPITATIONS [None]
